FAERS Safety Report 23815007 (Version 1)
Quarter: 2024Q2

REPORT INFORMATION
  Report Type: Spontaneous
  Country: FR (occurrence: FR)
  Receive Date: 20240503
  Receipt Date: 20240503
  Transmission Date: 20240716
  Serious: Yes (Hospitalization, Other)
  Sender: FDA-Public Use
  Company Number: FR-AFSSAPS-CN2024000399

PATIENT
  Age: 29 Year
  Sex: Female
  Weight: 59.8 kg

DRUGS (3)
  1. TRAMADOL [Suspect]
     Active Substance: TRAMADOL\TRAMADOL HYDROCHLORIDE
     Indication: Pain
     Dosage: 50 MILLIGRAM, AS NECESSARY (TRAMADOL LI 50 MG IF NECESSARY))
     Route: 048
     Dates: start: 20240406, end: 20240412
  2. TRAMADOL [Suspect]
     Active Substance: TRAMADOL\TRAMADOL HYDROCHLORIDE
     Dosage: 50 MILLIGRAM (TRAMADOL LP 50 MG ONE DOSE)
     Route: 048
     Dates: start: 20240410, end: 20240410
  3. TRAMADOL [Suspect]
     Active Substance: TRAMADOL\TRAMADOL HYDROCHLORIDE
     Dosage: 100 MILLIGRAM (TRAMADOL LP 100 MG 1-0-1)
     Route: 048
     Dates: start: 20240411, end: 20240412

REACTIONS (2)
  - Hepatic cytolysis [Recovering/Resolving]
  - Cholestasis [Recovering/Resolving]

NARRATIVE: CASE EVENT DATE: 20240410
